FAERS Safety Report 16504945 (Version 1)
Quarter: 2019Q3

REPORT INFORMATION
  Report Type: Spontaneous
  Country: US (occurrence: US)
  Receive Date: 20190701
  Receipt Date: 20190701
  Transmission Date: 20191004
  Serious: No
  Sender: FDA-Public Use
  Company Number: US-PFM-2019-02377

PATIENT
  Age: 6 Month
  Sex: Female
  Weight: 6.88 kg

DRUGS (2)
  1. HEMANGEOL [Suspect]
     Active Substance: PROPRANOLOL HYDROCHLORIDE
     Indication: INFANTILE HAEMANGIOMA
     Dosage: 0.9 ML, BID (2/DAY) WITH FOOD
     Route: 048
     Dates: start: 201812
  2. HEMANGEOL [Suspect]
     Active Substance: PROPRANOLOL HYDROCHLORIDE
     Dosage: 0.8 ML, QD (1/DAY)
     Route: 048
     Dates: start: 20190226

REACTIONS (3)
  - Inappropriate schedule of product administration [Unknown]
  - Sleep terror [Unknown]
  - Off label use [Unknown]
